FAERS Safety Report 6996888-0 (Version None)
Quarter: 2010Q3

REPORT INFORMATION
  Report Type: 
  Country: None (occurrence: None)
  Receive Date: 20100918
  Receipt Date: 20090902
  Transmission Date: 20110219
  Serious: No
  Sender: FDA-Public Use
  Company Number: US-WYE-H10325809

PATIENT
  Sex: Female
  Weight: 58.11 kg

DRUGS (4)
  1. PRISTIQ [Suspect]
     Indication: DEPRESSION
     Route: 048
     Dates: start: 20090721
  2. ESTRACE [Concomitant]
  3. ADDERALL 10 [Concomitant]
  4. LEVOTHYROXINE [Concomitant]

REACTIONS (2)
  - BREAST PAIN [None]
  - FATIGUE [None]
